FAERS Safety Report 24908034 (Version 1)
Quarter: 2025Q1

REPORT INFORMATION
  Report Type: Spontaneous
  Country: JP (occurrence: JP)
  Receive Date: 20250131
  Receipt Date: 20250131
  Transmission Date: 20250409
  Serious: Yes (Other)
  Sender: AMGEN
  Company Number: JP-DSJP-DS-2025-121076-

PATIENT
  Age: 15 Year
  Sex: Female

DRUGS (1)
  1. BEVACIZUMAB [Suspect]
     Active Substance: BEVACIZUMAB
     Indication: Brain stem glioma
     Dosage: 15 MG/KG, ONCE EVERY 2 WK
     Route: 065

REACTIONS (2)
  - Hypertonia [Recovered/Resolved]
  - Pain in extremity [Recovered/Resolved]
